FAERS Safety Report 26078302 (Version 2)
Quarter: 2025Q4

REPORT INFORMATION
  Report Type: Report from Study
  Country: US (occurrence: US)
  Receive Date: 20251122
  Receipt Date: 20251124
  Transmission Date: 20260118
  Serious: No
  Sender: BOEHRINGER INGELHEIM
  Company Number: US-Komodo Health-a23aa00000CC6QvAAL

PATIENT
  Age: 76 Year
  Sex: Male

DRUGS (1)
  1. JASCAYD [Suspect]
     Active Substance: NERANDOMILAST
     Indication: Idiopathic pulmonary fibrosis
     Dates: start: 20251117, end: 20251117

REACTIONS (1)
  - Paraesthesia [Unknown]

NARRATIVE: CASE EVENT DATE: 20251117
